FAERS Safety Report 9360021 (Version 1)
Quarter: 2013Q2

REPORT INFORMATION
  Report Type: Spontaneous
  Country: FR (occurrence: FR)
  Receive Date: 20130621
  Receipt Date: 20130621
  Transmission Date: 20140414
  Serious: Yes (Hospitalization)
  Sender: FDA-Public Use
  Company Number: PHHY2013FR063002

PATIENT
  Age: 55 Year
  Sex: Female

DRUGS (6)
  1. MYFORTIC [Suspect]
     Indication: RENAL TRANSPLANT
     Dosage: 2 DF, BID
     Route: 048
  2. OMEPRAZOLE [Suspect]
     Dosage: 20 MG, QD
     Route: 048
  3. RAPAMUNE [Suspect]
     Indication: RENAL TRANSPLANT
     Dosage: 2 MG, QD
     Route: 048
     Dates: start: 201204, end: 20130102
  4. TAHOR [Suspect]
     Dosage: 20 MG, QD
     Route: 048
  5. PROGRAF [Concomitant]
     Dosage: 2.5 MG, QD (IN MORNING)
  6. PROGRAF [Concomitant]
     Dosage: 2 MG, QD (IN EVENING)

REACTIONS (2)
  - Lung disorder [Not Recovered/Not Resolved]
  - Haemoptysis [Recovered/Resolved]
